FAERS Safety Report 5098748-1 (Version None)
Quarter: 2006Q3

REPORT INFORMATION
  Report Type: 
  Country: None (occurrence: None)
  Receive Date: 20060907
  Receipt Date: 20060905
  Transmission Date: 20061208
  Serious: Yes (Other)
  Sender: FDA-Public Use
  Company Number: 465

PATIENT
  Age: 38 Year
  Sex: Male
  Weight: 102 kg

DRUGS (9)
  1. FLOLAN [Suspect]
     Dosage: 77ML PER DAY
     Route: 042
     Dates: start: 20041015
  2. SPIRONOLACTONE [Concomitant]
     Dosage: 25MG PER DAY
  3. OMEPRAZOLE [Concomitant]
     Dosage: 20MG PER DAY
  4. WARFARIN SODIUM [Concomitant]
     Dosage: 7.5MG PER DAY
  5. LEVOTHYROXIN [Concomitant]
     Dosage: 150MCG PER DAY
  6. SILDENAFIL [Concomitant]
     Dosage: 100MG THREE TIMES PER DAY
  7. DIGOXIN [Concomitant]
     Dosage: .125MG PER DAY
  8. FUROSEMIDE [Concomitant]
     Dosage: 80MG PER DAY
  9. POTASSIUM CHLORIDE [Concomitant]
     Dosage: 20MEQ PER DAY

REACTIONS (2)
  - URTICARIA [None]
  - VASCULITIS [None]
